FAERS Safety Report 7678292-5 (Version None)
Quarter: 2011Q3

REPORT INFORMATION
  Report Type: 
  Country: None (occurrence: None)
  Receive Date: 20110811
  Receipt Date: 20110805
  Transmission Date: 20111222
  Serious: Yes (Life-Threatening, Other)
  Sender: FDA-Public Use
  Company Number: PHHO2011FR13366

PATIENT
  Sex: Male
  Weight: 74 kg

DRUGS (4)
  1. AZILECT [Suspect]
     Indication: PARKINSON'S DISEASE
     Dosage: 1 MG/DAY
     Dates: start: 20100101
  2. STALEVO 100 [Suspect]
     Indication: PARKINSON'S DISEASE
     Dosage: 150 MG, 5/DAY
     Route: 048
     Dates: start: 20090101
  3. REQUIP [Suspect]
     Indication: PARKINSON'S DISEASE
     Dosage: 200 MG, QD
     Dates: start: 20090301
  4. AFQ056 [Suspect]
     Indication: DYSKINESIA
     Dosage: 100 MG, QD
     Route: 048
     Dates: start: 20110419

REACTIONS (2)
  - ACCIDENT [None]
  - WOUND [None]
